FAERS Safety Report 24395589 (Version 1)
Quarter: 2024Q4

REPORT INFORMATION
  Report Type: Spontaneous
  Country: US (occurrence: US)
  Receive Date: 20241004
  Receipt Date: 20241004
  Transmission Date: 20250115
  Serious: Yes (Death, Hospitalization, Other)
  Sender: CONCORD BIOTECH
  Company Number: US-CBL-002803

PATIENT
  Age: 68 Year
  Sex: Female

DRUGS (2)
  1. MYCOPHENOLATE MOFETIL [Suspect]
     Active Substance: MYCOPHENOLATE MOFETIL
     Indication: Myocarditis
     Route: 065
  2. METHYLPREDNISOLONE [Suspect]
     Active Substance: METHYLPREDNISOLONE
     Indication: Myocarditis
     Dosage: HIGH-DOSE
     Route: 065

REACTIONS (4)
  - Condition aggravated [Fatal]
  - Myocarditis [Fatal]
  - Drug ineffective [Unknown]
  - Product use in unapproved indication [Unknown]
